FAERS Safety Report 18614054 (Version 1)
Quarter: 2020Q4

REPORT INFORMATION
  Report Type: Spontaneous
  Country: US (occurrence: US)
  Receive Date: 20201214
  Receipt Date: 20201214
  Transmission Date: 20210114
  Serious: No
  Sender: FDA-Public Use
  Company Number: US-NOVOPROD-748382

PATIENT
  Age: 62 Year
  Sex: Male

DRUGS (5)
  1. LEVEMIR [Suspect]
     Active Substance: INSULIN DETEMIR
     Dosage: 20 IU, QD
     Route: 058
     Dates: start: 202003, end: 20200803
  2. OZEMPIC [Concomitant]
     Active Substance: SEMAGLUTIDE
     Indication: TYPE 2 DIABETES MELLITUS
     Dosage: 0.25 MG
     Route: 058
     Dates: start: 20200805
  3. LEVEMIR [Suspect]
     Active Substance: INSULIN DETEMIR
     Indication: TYPE 2 DIABETES MELLITUS
     Dosage: 20 IU, QD (20 UNITS ONCE A DAY)
     Route: 058
     Dates: start: 202003, end: 20200803
  4. OZEMPIC [Concomitant]
     Active Substance: SEMAGLUTIDE
     Dosage: 0.5 MG
     Route: 058
  5. NOVOLOG [Concomitant]
     Active Substance: INSULIN ASPART
     Indication: TYPE 2 DIABETES MELLITUS
     Dosage: SLIDING SCALE
     Route: 058

REACTIONS (1)
  - Flatulence [Recovered/Resolved]

NARRATIVE: CASE EVENT DATE: 202003
